FAERS Safety Report 18074246 (Version 1)
Quarter: 2020Q3

REPORT INFORMATION
  Report Type: Spontaneous
  Country: US (occurrence: US)
  Receive Date: 20200727
  Receipt Date: 20200727
  Transmission Date: 20201103
  Serious: Yes (Other)
  Sender: FDA-Public Use
  Company Number: US-GILEAD-2020-0485069

PATIENT
  Sex: Female

DRUGS (3)
  1. REMDESIVIR. [Suspect]
     Active Substance: REMDESIVIR
     Indication: COVID-19
     Dosage: 100 MG, QD
     Route: 042
     Dates: start: 202007
  2. PROPOFOL. [Concomitant]
     Active Substance: PROPOFOL
     Indication: BRADYCARDIA
     Dosage: UNK
  3. VERSED [Concomitant]
     Active Substance: MIDAZOLAM HYDROCHLORIDE
     Indication: BRADYCARDIA
     Dosage: UNK

REACTIONS (3)
  - Angioedema [Not Recovered/Not Resolved]
  - Bradycardia [Not Recovered/Not Resolved]
  - Fluid overload [Not Recovered/Not Resolved]
